FAERS Safety Report 5010386-5 (Version None)
Quarter: 2006Q2

REPORT INFORMATION
  Report Type: 
  Country: None (occurrence: None)
  Receive Date: 20060523
  Receipt Date: 20060510
  Transmission Date: 20061013
  Serious: Yes (Hospitalization)
  Sender: FDA-Public Use
  Company Number: 2006-073

PATIENT
  Age: 66 Year
  Sex: Female
  Weight: 63.5036 kg

DRUGS (1)
  1. PROPRANOLOL HCL [Suspect]
     Dates: end: 20060510

REACTIONS (9)
  - BLOOD GLUCOSE INCREASED [None]
  - DIZZINESS [None]
  - DRUG PRESCRIBING ERROR [None]
  - DRY MOUTH [None]
  - FALL [None]
  - FATIGUE [None]
  - INCORRECT DOSE ADMINISTERED [None]
  - MUSCULAR WEAKNESS [None]
  - WHEELCHAIR USER [None]
